FAERS Safety Report 6438469-3 (Version None)
Quarter: 2009Q4

REPORT INFORMATION
  Report Type: 
  Country: None (occurrence: None)
  Receive Date: 20091110
  Receipt Date: 20091104
  Transmission Date: 20100525
  Serious: Yes (Other)
  Sender: FDA-Public Use
  Company Number: LTI2009A00310

PATIENT
  Age: 25 Year
  Sex: Male

DRUGS (6)
  1. ACTOS [Suspect]
     Indication: CONGENITAL GENERALISED LIPODYSTROPHY
     Dosage: 45 MG  ORAL, 30 MG  ORAL
     Route: 048
     Dates: start: 20070101, end: 20090401
  2. ACTOS [Suspect]
     Indication: CONGENITAL GENERALISED LIPODYSTROPHY
     Dosage: 45 MG  ORAL, 30 MG  ORAL
     Route: 048
     Dates: start: 20090401
  3. NOVOMIX (INSULIN ASPART, PROTAMINE INSULIN ASPART) [Concomitant]
  4. GLUCOPHAGE [Concomitant]
  5. DEPAMIDE (VALPROMIDE) [Concomitant]
  6. TERCIAN (CYAMEMAZINE) [Concomitant]

REACTIONS (2)
  - FALL [None]
  - FOOT FRACTURE [None]
